FAERS Safety Report 7177697-9 (Version None)
Quarter: 2010Q4

REPORT INFORMATION
  Report Type: 
  Country: None (occurrence: None)
  Receive Date: 20101220
  Receipt Date: 20101124
  Transmission Date: 20110411
  Serious: Yes (Other)
  Sender: FDA-Public Use
  Company Number: US-PFIZER INC-2009262714

PATIENT
  Sex: Female
  Weight: 66 kg

DRUGS (48)
  1. PROVERA [Suspect]
     Indication: HORMONE THERAPY
     Dosage: UNK
     Dates: start: 19910627, end: 19910729
  2. PROVERA [Suspect]
     Indication: HOT FLUSH
     Dosage: UNK
     Dates: start: 19910913
  3. PROVERA [Suspect]
     Indication: NIGHT SWEATS
     Dosage: UNK
     Dates: start: 19911112, end: 19911213
  4. PROVERA [Suspect]
     Indication: MOOD SWINGS
     Dosage: UNK
     Dates: start: 19920430
  5. PROVERA [Suspect]
     Indication: VULVOVAGINAL DRYNESS
     Dosage: UNK
     Dates: start: 19920724, end: 19920828
  6. PROVERA [Suspect]
     Indication: VULVOVAGINAL PAIN
     Dosage: UNK
     Dates: start: 19921102
  7. PROVERA [Suspect]
     Dosage: UNK
     Dates: start: 19930331
  8. PROVERA [Suspect]
     Dosage: UNK
     Dates: start: 19930623
  9. PROVERA [Suspect]
     Dosage: UNK
     Dates: start: 19930820, end: 19930827
  10. PROVERA [Suspect]
     Dosage: UNK
     Dates: start: 19931015
  11. PROVERA [Suspect]
     Dosage: UNK
     Dates: start: 19931223
  12. PROVERA [Suspect]
     Dosage: UNK
     Dates: start: 19940519
  13. PROVERA [Suspect]
     Dosage: UNK
     Dates: start: 19940826, end: 19940927
  14. PROVERA [Suspect]
     Dosage: UNK
     Dates: start: 19950131
  15. PROVERA [Suspect]
     Dosage: UNK
     Dates: start: 19950419
  16. PROVERA [Suspect]
     Dosage: UNK
     Dates: start: 19950627
  17. PROVERA [Suspect]
     Dosage: UNK
     Dates: start: 19960805
  18. PREMARIN [Suspect]
     Indication: HOT FLUSH
     Dosage: UNK
     Dates: start: 19910627, end: 19910729
  19. PREMARIN [Suspect]
     Indication: NIGHT SWEATS
     Dosage: UNK
     Dates: start: 19910913
  20. PREMARIN [Suspect]
     Indication: MOOD SWINGS
     Dosage: UNK
     Dates: start: 19911112, end: 19911213
  21. PREMARIN [Suspect]
     Indication: VULVOVAGINAL DRYNESS
     Dosage: UNK
     Dates: start: 19920724, end: 19920828
  22. PREMARIN [Suspect]
     Indication: VULVOVAGINAL PAIN
     Dosage: UNK
     Dates: start: 19921102
  23. PREMARIN [Suspect]
     Dosage: UNK
     Dates: start: 19931223
  24. PREMARIN [Suspect]
     Dosage: UNK
     Dates: start: 19940519
  25. PREMARIN [Suspect]
     Dosage: UNK
     Dates: start: 19941129
  26. PREMARIN [Suspect]
     Dosage: UNK
     Dates: start: 19950419
  27. PREMARIN [Suspect]
     Dosage: UNK
     Dates: start: 19960424, end: 19960607
  28. PREMARIN [Suspect]
     Dosage: UNK
     Dates: start: 19960805
  29. PREMARIN [Suspect]
     Dosage: UNK
     Dates: start: 19970513
  30. PREMARIN [Suspect]
     Dosage: UNK
     Dates: start: 19980123
  31. PREMPRO [Suspect]
     Indication: HORMONE THERAPY
     Dosage: UNK
     Dates: start: 19960424, end: 19960607
  32. PREMPRO [Suspect]
     Indication: HOT FLUSH
     Dosage: UNK
     Dates: start: 19960906, end: 19970306
  33. PREMPRO [Suspect]
     Indication: NIGHT SWEATS
     Dosage: UNK
     Dates: start: 19970929
  34. PREMPRO [Suspect]
     Indication: MOOD SWINGS
     Dosage: UNK
     Dates: start: 19971203
  35. PREMPRO [Suspect]
     Indication: VULVOVAGINAL DRYNESS
     Dosage: UNK
     Dates: start: 19980629, end: 19980727
  36. PREMPRO [Suspect]
     Indication: VULVOVAGINAL PAIN
     Dosage: UNK
     Dates: start: 19990424, end: 19991004
  37. PREMPRO [Suspect]
     Dosage: UNK
     Dates: start: 20000524, end: 20020412
  38. CYCRIN [Suspect]
     Indication: HORMONE THERAPY
     Dosage: UNK
  39. ESTRADERM [Suspect]
     Indication: HORMONE THERAPY
     Dosage: UNK
     Dates: start: 19920430
  40. ESTRADERM [Suspect]
     Indication: HOT FLUSH
     Dosage: UNK
     Dates: start: 19930331
  41. ESTRADERM [Suspect]
     Indication: NIGHT SWEATS
     Dosage: UNK
     Dates: start: 19930623
  42. ESTRADERM [Suspect]
     Indication: MOOD SWINGS
     Dosage: UNK
     Dates: start: 19930820, end: 19930827
  43. ESTRADERM [Suspect]
     Indication: VULVOVAGINAL DRYNESS
     Dosage: UNK
     Dates: start: 19931015
  44. ESTRADERM [Suspect]
     Indication: VULVOVAGINAL PAIN
     Dosage: UNK
     Dates: start: 19940315
  45. ESTRADERM [Suspect]
     Dosage: UNK
     Dates: start: 19940826, end: 19940927
  46. ESTRADERM [Suspect]
     Dosage: UNK
     Dates: start: 19941129
  47. ESTRADERM [Suspect]
     Dosage: UNK
     Dates: start: 19950131
  48. ESTRADERM [Suspect]
     Dosage: UNK
     Dates: start: 19950627

REACTIONS (2)
  - BREAST CANCER FEMALE [None]
  - MUSCLE SPASMS [None]
